FAERS Safety Report 17533915 (Version 1)
Quarter: 2020Q1

REPORT INFORMATION
  Report Type: Spontaneous
  Country: US (occurrence: US)
  Receive Date: 20200312
  Receipt Date: 20200312
  Transmission Date: 20200409
  Serious: Yes (Hospitalization)
  Sender: FDA-Public Use
  Company Number: None

PATIENT
  Age: 65 Year
  Sex: Female

DRUGS (8)
  1. VITAMIN B12 [Concomitant]
     Active Substance: CYANOCOBALAMIN
  2. HUMIRA [Suspect]
     Active Substance: ADALIMUMAB
     Indication: PSORIASIS
     Dosage: ?          OTHER FREQUENCY:EVERY 2 WEEKS;?
     Route: 058
     Dates: start: 20170404
  3. XANAX [Concomitant]
     Active Substance: ALPRAZOLAM
  4. CELEBREX [Concomitant]
     Active Substance: CELECOXIB
  5. CALCIFEROL [Concomitant]
  6. OCUVITE [Concomitant]
     Active Substance: VITAMINS
  7. FLUOXETINE [Concomitant]
     Active Substance: FLUOXETINE HYDROCHLORIDE
  8. HYDROXYZ PAM CAP [Concomitant]

REACTIONS (1)
  - Sepsis [None]

NARRATIVE: CASE EVENT DATE: 20200302
